FAERS Safety Report 8767562 (Version 3)
Quarter: 2013Q1

REPORT INFORMATION
  Report Type: Spontaneous
  Country: DE (occurrence: DE)
  Receive Date: 20120904
  Receipt Date: 20130221
  Transmission Date: 20140127
  Serious: Yes (Life-Threatening, Hospitalization)
  Sender: FDA-Public Use
  Company Number: DE-CELGENEUS-062-21660-12082895

PATIENT
  Age: 39 Year
  Sex: Female
  Weight: 79 kg

DRUGS (6)
  1. ABRAXANE [Suspect]
     Indication: PAGET^S DISEASE OF NIPPLE
     Dosage: 100 MILLIGRAM/SQ. METER
     Route: 041
     Dates: start: 201110, end: 201112
  2. HERCEPTIN [Suspect]
     Indication: PAGET^S DISEASE OF NIPPLE
     Dosage: 4 MILLIGRAM/KILOGRAM
     Route: 041
     Dates: start: 201110, end: 20120209
  3. CYCLOPHOSPHAMIDE [Suspect]
     Indication: PAGET^S DISEASE OF NIPPLE
     Dosage: 500 MILLIGRAM/SQ. METER
     Route: 041
     Dates: start: 201112, end: 20120209
  4. PANTOZOL [Concomitant]
     Indication: PRODUCT USED FOR UNKNOWN INDICATION
     Route: 065
  5. L-THYROXIN [Concomitant]
     Indication: PRODUCT USED FOR UNKNOWN INDICATION
     Route: 065
  6. DECORTIN [Concomitant]
     Indication: PRODUCT USED FOR UNKNOWN INDICATION
     Route: 065

REACTIONS (5)
  - Pneumonitis [Recovered/Resolved]
  - Pulmonary toxicity [None]
  - Sinus tachycardia [None]
  - Red blood cell count decreased [None]
  - Haemoglobin decreased [None]
